FAERS Safety Report 17846463 (Version 1)
Quarter: 2020Q2

REPORT INFORMATION
  Report Type: Spontaneous
  Country: US (occurrence: US)
  Receive Date: 20200601
  Receipt Date: 20200601
  Transmission Date: 20200714
  Serious: Yes (Hospitalization)
  Sender: FDA-Public Use
  Company Number: None

PATIENT
  Sex: Female

DRUGS (2)
  1. TUKYSA [Suspect]
     Active Substance: TUCATINIB
  2. CAPECITABINE. [Suspect]
     Active Substance: CAPECITABINE

REACTIONS (6)
  - Device breakage [None]
  - Device related infection [None]
  - Hypertension [None]
  - Heart rate increased [None]
  - Fatigue [None]
  - Therapy interrupted [None]
